FAERS Safety Report 10003931 (Version 2)
Quarter: 2014Q3

REPORT INFORMATION
  Report Type: Report from Study
  Country: US (occurrence: US)
  Receive Date: 20140312
  Receipt Date: 20140807
  Transmission Date: 20150326
  Serious: No
  Sender: FDA-Public Use
  Company Number: US-ABBVIE-14P-163-1192872-00

PATIENT
  Age: 46 Year
  Sex: Female

DRUGS (2)
  1. DEPAKOTE ER [Suspect]
     Active Substance: DIVALPROEX SODIUM
     Indication: DEPRESSION
  2. DEPAKOTE ER [Suspect]
     Active Substance: DIVALPROEX SODIUM
     Indication: BIPOLAR DISORDER
     Dosage: AT BEDTIME
     Route: 048

REACTIONS (17)
  - Frustration [Recovered/Resolved]
  - Anger [Not Recovered/Not Resolved]
  - Drug level decreased [Not Recovered/Not Resolved]
  - Feeling abnormal [Recovered/Resolved]
  - Malaise [Recovered/Resolved]
  - Insomnia [Not Recovered/Not Resolved]
  - Drug dose omission [Not Recovered/Not Resolved]
  - Unevaluable event [Recovered/Resolved]
  - Agitation [Not Recovered/Not Resolved]
  - Unevaluable event [Not Recovered/Not Resolved]
  - Dizziness [Not Recovered/Not Resolved]
  - Frustration [Not Recovered/Not Resolved]
  - Off label use [Not Recovered/Not Resolved]
  - Anger [Recovered/Resolved]
  - Fatigue [Not Recovered/Not Resolved]
  - Eating disorder [Not Recovered/Not Resolved]
  - Anxiety [Not Recovered/Not Resolved]

NARRATIVE: CASE EVENT DATE: 201401
